FAERS Safety Report 7433273-1 (Version None)
Quarter: 2011Q2

REPORT INFORMATION
  Report Type: 
  Country: None (occurrence: None)
  Receive Date: 20110422
  Receipt Date: 20110421
  Transmission Date: 20111010
  Serious: Yes (Life-Threatening, Hospitalization, Other)
  Sender: FDA-Public Use
  Company Number: IE-ABBOTT-11P-229-0702458-00

PATIENT
  Sex: Female

DRUGS (5)
  1. HUMIRA [Suspect]
     Indication: SERONEGATIVE ARTHRITIS
     Route: 058
     Dates: start: 20080101, end: 20081001
  2. HUMIRA [Suspect]
     Route: 058
     Dates: start: 20081001, end: 20110101
  3. ISTIN [Concomitant]
     Indication: PRODUCT USED FOR UNKNOWN INDICATION
     Route: 048
     Dates: start: 20100620
  4. ELTROXIN [Concomitant]
     Indication: HYPERTHYROIDISM
  5. DELTACORTRIL ENTERIC [Concomitant]
     Indication: PRODUCT USED FOR UNKNOWN INDICATION
     Route: 048
     Dates: start: 20100603

REACTIONS (11)
  - OVARIAN CANCER [None]
  - GAMMA-GLUTAMYLTRANSFERASE ABNORMAL [None]
  - UTERINE CYST [None]
  - OVARIAN CANCER METASTATIC [None]
  - HEPATIC CANCER METASTATIC [None]
  - NODULE [None]
  - ASCITES [None]
  - LIVER DISORDER [None]
  - NAUSEA [None]
  - VOMITING [None]
  - INTESTINAL STENOSIS [None]
